FAERS Safety Report 8030784-5 (Version None)
Quarter: 2011Q4

REPORT INFORMATION
  Report Type: 
  Country: None (occurrence: None)
  Receive Date: 20111202
  Receipt Date: 20090901
  Transmission Date: 20120403
  Serious: Yes (Hospitalization, Other)
  Sender: FDA-Public Use
  Company Number: 2009SP23522

PATIENT
  Age: 31 Year
  Sex: Female
  Weight: 104.3273 kg

DRUGS (2)
  1. NUVARING [Suspect]
     Indication: CONTRACEPTION
     Dosage: 1 DF
     Dates: start: 20080919, end: 20090101
  2. METFORMIN HCL [Concomitant]

REACTIONS (4)
  - DRUG HYPERSENSITIVITY [None]
  - PULMONARY EMBOLISM [None]
  - DEEP VEIN THROMBOSIS [None]
  - OLIGOMENORRHOEA [None]
